FAERS Safety Report 5422629-4 (Version None)
Quarter: 2007Q3

REPORT INFORMATION
  Report Type: 
  Country: None (occurrence: None)
  Receive Date: 20070730
  Receipt Date: 20061005
  Transmission Date: 20080115
  Serious: Yes (Hospitalization, Other)
  Sender: FDA-Public Use
  Company Number: 200614952BWH

PATIENT
  Age: 43 Year
  Sex: Female
  Weight: 52.1637 kg

DRUGS (1)
  1. AVELOX [Suspect]
     Dosage: 400 MG, ONCE, ORAL
     Route: 048
     Dates: start: 20060630

REACTIONS (4)
  - BLOOD PRESSURE INCREASED [None]
  - FEELING HOT [None]
  - HEART RATE INCREASED [None]
  - PANIC ATTACK [None]
